FAERS Safety Report 7093118-9 (Version None)
Quarter: 2010Q4

REPORT INFORMATION
  Report Type: 
  Country: None (occurrence: None)
  Receive Date: 20101110
  Receipt Date: 20101108
  Transmission Date: 20110411
  Serious: Yes (Hospitalization)
  Sender: FDA-Public Use
  Company Number: FR-BRISTOL-MYERS SQUIBB COMPANY-15214141

PATIENT
  Age: 85 Year
  Sex: Female

DRUGS (13)
  1. COAPROVEL [Suspect]
     Dosage: 300/12.5 MG
     Route: 048
     Dates: end: 20100602
  2. BISOPROLOL FUMARATE [Suspect]
     Route: 048
     Dates: end: 20100518
  3. NEXEN [Suspect]
     Indication: ARTHRITIS
     Route: 048
     Dates: start: 20100513, end: 20100517
  4. NEXIUM [Suspect]
     Dosage: GASTRO-RESISTANT TABLET
     Dates: end: 20100607
  5. PROZAC [Concomitant]
  6. LERCANIDIPINE [Concomitant]
  7. CALCIUM D3 SANDOZ [Concomitant]
  8. TRANSIPEG [Concomitant]
  9. LEXOMIL [Concomitant]
  10. XYZAL [Concomitant]
  11. TOPALGIC [Concomitant]
  12. NITROGLYCERIN [Concomitant]
  13. LOVENOX [Concomitant]

REACTIONS (2)
  - EOSINOPHILIC PNEUMONIA ACUTE [None]
  - INTERSTITIAL LUNG DISEASE [None]
